FAERS Safety Report 7457511-4 (Version None)
Quarter: 2011Q2

REPORT INFORMATION
  Report Type: 
  Country: None (occurrence: None)
  Receive Date: 20110504
  Receipt Date: 20110502
  Transmission Date: 20111010
  Serious: Yes (Life-Threatening, Hospitalization, Disabling)
  Sender: FDA-Public Use
  Company Number: US-B.I. PHARMACEUTICALS,INC./RIDGEFIELD-2011-BP-09967BP

PATIENT
  Sex: Male

DRUGS (4)
  1. LISINOPRIL [Concomitant]
     Indication: HYPERTENSION
     Dosage: 20 MG
     Route: 048
  2. PRADAXA [Suspect]
     Indication: ATRIAL FIBRILLATION
     Dosage: 300 MG
     Route: 048
     Dates: start: 20110321
  3. HYDROCHLOROTHIAZIDE [Concomitant]
     Indication: HYPERTENSION
     Dosage: 25 MG
     Route: 048
  4. SOLONAL [Concomitant]
     Dosage: 360 MG
     Route: 048

REACTIONS (3)
  - FEELING ABNORMAL [None]
  - DYSPNOEA [None]
  - CEREBROVASCULAR ACCIDENT [None]
